FAERS Safety Report 6236147-7 (Version None)
Quarter: 2009Q2

REPORT INFORMATION
  Report Type: 
  Country: None (occurrence: None)
  Receive Date: 20090619
  Receipt Date: 20090608
  Transmission Date: 20091009
  Serious: Yes (Other)
  Sender: FDA-Public Use
  Company Number: RU-PFIZER INC-2009225715

PATIENT
  Age: 65 Year

DRUGS (1)
  1. XALATAN [Suspect]
     Indication: OPEN ANGLE GLAUCOMA
     Dosage: 1 GTT, 1X/DAY
     Dates: start: 20030101

REACTIONS (3)
  - FEELING ABNORMAL [None]
  - INTRAOCULAR PRESSURE INCREASED [None]
  - PTERYGIUM [None]
